FAERS Safety Report 5841304-5 (Version None)
Quarter: 2008Q3

REPORT INFORMATION
  Report Type: 
  Country: None (occurrence: None)
  Receive Date: 20080812
  Receipt Date: 20080805
  Transmission Date: 20090109
  Serious: Yes (Other)
  Sender: FDA-Public Use
  Company Number: US-BAYER-200827622NA

PATIENT
  Sex: Male

DRUGS (1)
  1. LEVITRA [Suspect]
     Indication: DRUG USE FOR UNKNOWN INDICATION
     Dosage: UNIT DOSE: 20 MG
     Route: 048
     Dates: start: 20080701

REACTIONS (4)
  - BLOOD URINE PRESENT [None]
  - HAEMORRHAGE URINARY TRACT [None]
  - PROSTATITIS [None]
  - URINARY TRACT INFECTION [None]
